FAERS Safety Report 14674837 (Version 1)
Quarter: 2018Q1

REPORT INFORMATION
  Report Type: Spontaneous
  Country: JP (occurrence: JP)
  Receive Date: 20180323
  Receipt Date: 20180323
  Transmission Date: 20180509
  Serious: Yes (Hospitalization, Other)
  Sender: FDA-Public Use
  Company Number: JP-GLAXOSMITHKLINE-JP2018JPN046027

PATIENT
  Age: 49 Year
  Sex: Female

DRUGS (11)
  1. TRAZODONE HYDROCHLORIDE. [Suspect]
     Active Substance: TRAZODONE HYDROCHLORIDE
     Dosage: 600 MG, SINGLE
     Route: 048
  2. PROPRANOLOL HYDROCHLORIDE. [Suspect]
     Active Substance: PROPRANOLOL HYDROCHLORIDE
     Dosage: 20 MG, SINGLE
     Route: 048
  3. DIAZEPAM. [Suspect]
     Active Substance: DIAZEPAM
     Dosage: 45 MG, SINGLE
     Route: 048
  4. AMITRIPTYLINE HYDROCHLORIDE. [Suspect]
     Active Substance: AMITRIPTYLINE HYDROCHLORIDE
     Dosage: 90 MG, SINGLE
     Route: 048
  5. DULOXETINE HYDROCHLORIDE. [Suspect]
     Active Substance: DULOXETINE HYDROCHLORIDE
     Dosage: 60 MG, SINGLE
     Route: 048
  6. AMOXAPINE. [Suspect]
     Active Substance: AMOXAPINE
     Dosage: 450 MG, SINGLE
     Route: 048
  7. CLONAZEPAM. [Suspect]
     Active Substance: CLONAZEPAM
     Dosage: 2 MG, SINGLE
     Route: 048
  8. LAMICTAL [Suspect]
     Active Substance: LAMOTRIGINE
     Indication: DEPRESSION
     Dosage: 500 MG, SINGLE
     Route: 048
  9. FLUNITRAZEPAM [Suspect]
     Active Substance: FLUNITRAZEPAM
     Dosage: 12 MG, SINGLE
     Route: 048
  10. BROTIZOLAM [Suspect]
     Active Substance: BROTIZOLAM
     Dosage: 1.5 MG, SINGLE
     Route: 048
  11. ZOLPIDEM TARTRATE. [Suspect]
     Active Substance: ZOLPIDEM TARTRATE
     Dosage: 30 MG, SINGLE
     Route: 048

REACTIONS (6)
  - Intentional overdose [Unknown]
  - Altered state of consciousness [Recovering/Resolving]
  - Heart rate decreased [Recovering/Resolving]
  - Electrocardiogram QT prolonged [Recovering/Resolving]
  - Blood pressure decreased [Recovering/Resolving]
  - Cardiovascular insufficiency [Recovering/Resolving]
